FAERS Safety Report 8111413-9 (Version None)
Quarter: 2012Q1

REPORT INFORMATION
  Report Type: 
  Country: None (occurrence: None)
  Receive Date: 20120203
  Receipt Date: 20111121
  Transmission Date: 20120608
  Serious: No
  Sender: FDA-Public Use
  Company Number: US-GLAXOSMITHKLINE-A0954122A

PATIENT
  Age: 34 Year
  Sex: Female

DRUGS (1)
  1. LAMOTRIGINE [Suspect]
     Indication: BIPOLAR DISORDER
     Dosage: 75MG PER DAY
     Route: 048
     Dates: start: 20110901, end: 20111119

REACTIONS (1)
  - MATERNAL EXPOSURE DURING PREGNANCY [None]
